FAERS Safety Report 18656954 (Version 2)
Quarter: 2021Q1

REPORT INFORMATION
  Report Type: Spontaneous
  Country: US (occurrence: US)
  Receive Date: 20201224
  Receipt Date: 20210111
  Transmission Date: 20210419
  Serious: Yes (Death, Life-Threatening, Hospitalization, Other)
  Sender: FDA-Public Use
  Company Number: US-AUROBINDO-AUR-APL-2020-062308

PATIENT
  Sex: Male

DRUGS (1)
  1. AMIODARONE HYDROCHLORIDE 200 MG TABLET [Suspect]
     Active Substance: AMIODARONE HYDROCHLORIDE
     Indication: ATRIAL FIBRILLATION
     Dosage: UNK
     Route: 065
     Dates: start: 201803

REACTIONS (9)
  - Interstitial lung disease [Fatal]
  - Cough [Fatal]
  - Fatigue [Fatal]
  - Off label use [Unknown]
  - Renal injury [Fatal]
  - Respiratory failure [Fatal]
  - Pneumonia [Fatal]
  - Dyspnoea [Fatal]
  - Chest pain [Fatal]

NARRATIVE: CASE EVENT DATE: 201803
